FAERS Safety Report 5313184-8 (Version None)
Quarter: 2007Q2

REPORT INFORMATION
  Report Type: 
  Country: None (occurrence: None)
  Receive Date: 20070424
  Receipt Date: 20070420
  Transmission Date: 20071010
  Serious: Yes (Hospitalization)
  Sender: FDA-Public Use
  Company Number: LTI2007A00101

PATIENT
  Age: 92 Year
  Sex: Female

DRUGS (12)
  1. LANSOPRAZOLE [Suspect]
     Indication: ATROPHY
     Dosage: 1 DF (1 DF, 1 IN 1 D) ORAL
     Route: 048
     Dates: start: 20060908, end: 20070125
  2. LANSOPRAZOLE [Suspect]
     Indication: GASTRIC DISORDER
     Dosage: 1 DF (1 DF, 1 IN 1 D) ORAL
     Route: 048
     Dates: start: 20060908, end: 20070125
  3. ETIOVEN (NAFTAZONE) (TABLETS) [Concomitant]
  4. KARDEGIC (ACETYLSALICYLATE LYSINE) (POWDER) [Concomitant]
  5. ACETAMINOPHEN [Concomitant]
  6. HEMIGOXINE (DIGOXIN) (TABLETS) [Concomitant]
  7. COAPROVEL (KARVEA HCT) (TABLETS) [Concomitant]
  8. BUFLOMEDIL (BUFLOMEDIL) (TABLETS) [Concomitant]
  9. VASTAREL (TRIMETAZIDINE HYDROCHLORIDE) (TABLETS) [Concomitant]
  10. IMOVANE (ZOPICLONE) (TABLETS) [Concomitant]
  11. KERLONE (BETAXOLOL) (TABLETS) [Concomitant]
  12. ZANIDIP (LERCANIDIPINE HYDROCHLORIDE) (TABLETS) [Concomitant]

REACTIONS (11)
  - ABNORMAL BEHAVIOUR [None]
  - ANOREXIA [None]
  - ANTINUCLEAR ANTIBODY POSITIVE [None]
  - ASTHENIA [None]
  - FEMUR FRACTURE [None]
  - GENERAL PHYSICAL HEALTH DETERIORATION [None]
  - SICCA SYNDROME [None]
  - SJOGREN'S SYNDROME [None]
  - SOMNOLENCE [None]
  - SYSTEMIC LUPUS ERYTHEMATOSUS [None]
  - WEIGHT DECREASED [None]
